FAERS Safety Report 9491445 (Version 2)
Quarter: 2013Q1

REPORT INFORMATION
  Report Type: Not Available
  Country: US (occurrence: US)
  Receive Date: 20120619
  Receipt Date: 20120619
  Transmission Date: 20140127
  Serious: Yes (Hospitalization)
  Sender: FDA-Public Use
  Company Number: US-LUNDBECK-DKLU1076688

PATIENT
  Age: 8 None
  Sex: Male
  Weight: 36 kg

DRUGS (12)
  1. CLOBAZAM [Suspect]
     Indication: LENNOX-GASTAUT SYNDROME
     Route: 048
     Dates: start: 20091116
  2. CLOBAZAM [Suspect]
     Route: 048
  3. CLOBAZAM [Suspect]
     Route: 048
  4. DIAZEPAM [Concomitant]
     Indication: CONVULSION
     Route: 050
  5. DIAZEPAM [Concomitant]
     Indication: CONVULSION
     Route: 050
  6. TOPIRAMATE [Concomitant]
     Indication: CONVULSION
     Route: 048
  7. DIVALPROEX [Concomitant]
     Indication: CONVULSION
     Route: 048
     Dates: end: 20120207
  8. KEPPRA [Concomitant]
     Route: 048
     Dates: start: 20120209
  9. LEVOCARNITINE [Concomitant]
     Indication: HYPERAMMONAEMIA
     Route: 048
  10. LEVOCARNITINE [Concomitant]
     Route: 048
  11. LEVOCARNITINE [Concomitant]
     Route: 048
  12. L-CARNITINE [Concomitant]
     Indication: PRODUCT USED FOR UNKNOWN INDICATION
     Dates: start: 201111

REACTIONS (4)
  - Lethargy [Recovered/Resolved]
  - Hyperammonaemia [Recovered/Resolved]
  - Convulsion [Recovered/Resolved]
  - Encephalopathy [Recovered/Resolved]
